FAERS Safety Report 4864832-8 (Version None)
Quarter: 2005Q4

REPORT INFORMATION
  Report Type: 
  Country: None (occurrence: None)
  Receive Date: 20051222
  Receipt Date: 20050921
  Transmission Date: 20060501
  Serious: Yes (Death, Hospitalization)
  Sender: FDA-Public Use
  Company Number: US-MERCK-0509USA03146

PATIENT
  Age: 45 Year
  Sex: Female
  Weight: 50 kg

DRUGS (11)
  1. VIOXX [Suspect]
     Indication: TOOTHACHE
     Route: 048
     Dates: start: 20030911, end: 20030929
  2. CLINDAMYCIN [Concomitant]
     Route: 065
  3. TETRACYCLINE [Concomitant]
     Route: 065
  4. PHENOBARBITAL [Concomitant]
     Route: 065
  5. ERYTHROMYCIN [Concomitant]
     Route: 065
  6. FLUDROCORTISONE [Concomitant]
     Route: 065
  7. CORTEF [Concomitant]
     Route: 065
  8. HYDROCODONE HYDROCHLORIDE [Concomitant]
     Route: 065
  9. PREDNISONE [Concomitant]
     Route: 065
  10. PREVACID [Concomitant]
     Route: 065
  11. PREMARIN [Concomitant]
     Route: 065

REACTIONS (1)
  - CARDIAC ARREST [None]
